FAERS Safety Report 6943002-3 (Version None)
Quarter: 2010Q3

REPORT INFORMATION
  Report Type: 
  Country: None (occurrence: None)
  Receive Date: 20100825
  Receipt Date: 20100825
  Transmission Date: 20110219
  Serious: No
  Sender: FDA-Public Use
  Company Number: None

PATIENT
  Age: 67 Year
  Sex: Male
  Weight: 88.4514 kg

DRUGS (2)
  1. LISINOPRIL AND HYDROCHLOROTHIAZIDE [Suspect]
     Indication: HYPERTENSION
     Dosage: 20MG/25MG DAILY PO
     Route: 048
     Dates: start: 20080101, end: 20100824
  2. LASIX [Suspect]
     Indication: FLUID RETENTION
     Dosage: 20MG DAILY PO
     Route: 048
     Dates: start: 20080101, end: 20100824

REACTIONS (2)
  - ALOPECIA [None]
  - PRODUCT SUBSTITUTION ISSUE [None]
